FAERS Safety Report 7645138 (Version 12)
Quarter: 2013Q1

REPORT INFORMATION
  Report Type: Spontaneous
  Country: US (occurrence: US)
  Receive Date: 20101028
  Receipt Date: 20130117
  Transmission Date: 20140127
  Serious: Yes (Hospitalization, Disabling, Other)
  Sender: FDA-Public Use
  Company Number: US-009507513-1010USA02478

PATIENT
  Sex: 0

DRUGS (4)
  1. FOSAMAX [Suspect]
     Indication: OSTEOPOROSIS
     Dosage: 70 MG, QW
     Route: 048
     Dates: start: 2004, end: 20100515
  2. FOSAMAX [Suspect]
     Indication: OSTEOPOROSIS
     Dosage: 70 MG, QW
     Route: 048
     Dates: start: 20091101
  3. ALENDRONATE SODIUM [Suspect]
     Indication: OSTEOPOROSIS
     Dosage: 70 MG, QW
     Route: 048
     Dates: start: 20081118
  4. PROZAC [Concomitant]

REACTIONS (38)
  - Fracture delayed union [Recovering/Resolving]
  - Open reduction of fracture [Recovering/Resolving]
  - Haemorrhagic anaemia [Unknown]
  - Femur fracture [Recovering/Resolving]
  - Anxiety [Unknown]
  - Tooth extraction [Unknown]
  - Dental implantation [Unknown]
  - Chills [Unknown]
  - Fatigue [Unknown]
  - Weight increased [Unknown]
  - Diplopia [Unknown]
  - Cataract [Unknown]
  - Arrhythmia [Unknown]
  - Nocturia [Unknown]
  - Micturition urgency [Unknown]
  - Breast mass [Unknown]
  - Gait disturbance [Unknown]
  - Sensory loss [Unknown]
  - Ataxia [Unknown]
  - Memory impairment [Unknown]
  - Neuropathy peripheral [Unknown]
  - Gait disturbance [Unknown]
  - Pain [Unknown]
  - Limb asymmetry [Unknown]
  - Fall [Unknown]
  - Hysterectomy [Unknown]
  - Schizophrenia [Unknown]
  - Fall [Unknown]
  - Depression [Unknown]
  - Hyponatraemia [Unknown]
  - Sleep apnoea syndrome [Unknown]
  - Asthma [Unknown]
  - Blood cholesterol increased [Unknown]
  - Joint swelling [Unknown]
  - Gastrooesophageal reflux disease [Unknown]
  - Alopecia [Unknown]
  - Erythema [Unknown]
  - Removal of internal fixation [Unknown]
